FAERS Safety Report 8319454-3 (Version None)
Quarter: 2012Q2

REPORT INFORMATION
  Report Type: 
  Country: None (occurrence: None)
  Receive Date: 20120427
  Receipt Date: 20120417
  Transmission Date: 20120825
  Serious: Yes (Other)
  Sender: FDA-Public Use
  Company Number: SK-CELGENEUS-260-21880-12041849

PATIENT
  Age: 67 Year
  Sex: Male

DRUGS (6)
  1. LMWH [Concomitant]
     Route: 065
  2. EPOGEN [Concomitant]
     Route: 065
  3. REVLIMID [Suspect]
     Dosage: 10 MILLIGRAM
     Route: 048
     Dates: start: 20110201, end: 20110801
  4. DEXAMETHASONE [Concomitant]
     Indication: MULTIPLE MYELOMA
     Route: 065
     Dates: start: 20100201, end: 20101101
  5. DEXAMETHASONE [Concomitant]
     Dosage: 20 MILLIGRAM
     Route: 048
     Dates: start: 20110201, end: 20110801
  6. REVLIMID [Suspect]
     Indication: MULTIPLE MYELOMA
     Dosage: 25 MILLIGRAM
     Route: 048
     Dates: start: 20100201, end: 20101101

REACTIONS (4)
  - PELVIC VENOUS THROMBOSIS [None]
  - TYPE 2 DIABETES MELLITUS [None]
  - ANTITHROMBIN III DEFICIENCY [None]
  - DEEP VEIN THROMBOSIS [None]
